FAERS Safety Report 7308318-X (Version None)
Quarter: 2011Q1

REPORT INFORMATION
  Report Type: 
  Country: None (occurrence: None)
  Receive Date: 20110223
  Receipt Date: 20110214
  Transmission Date: 20110831
  Serious: Yes (Congenital Anomaly)
  Sender: FDA-Public Use
  Company Number: A0914721A

PATIENT
  Sex: Male
  Weight: 3.4 kg

DRUGS (5)
  1. TUMS [Concomitant]
  2. PRENATAL VITAMINS [Concomitant]
  3. TYLENOL [Concomitant]
  4. PAXIL [Suspect]
     Indication: DEPRESSION
     Dosage: 40MG PER DAY
     Route: 064
  5. FLAGYL [Concomitant]

REACTIONS (2)
  - TALIPES [None]
  - DRUG EXPOSURE DURING PREGNANCY [None]
